FAERS Safety Report 6907913-7 (Version None)
Quarter: 2010Q3

REPORT INFORMATION
  Report Type: 
  Country: None (occurrence: None)
  Receive Date: 20100805
  Receipt Date: 20100727
  Transmission Date: 20110219
  Serious: Yes (Hospitalization)
  Sender: FDA-Public Use
  Company Number: PHHY2010JP40556

PATIENT
  Sex: Female
  Weight: 39 kg

DRUGS (7)
  1. DIOVAN [Suspect]
     Indication: HYPERTENSION
     Dosage: 160 MG, QD
     Route: 048
     Dates: start: 20080115, end: 20080212
  2. ATELEC [Concomitant]
     Indication: HYPERTENSION
     Dosage: 20 MG, UNK
     Route: 048
     Dates: start: 20070903, end: 20080212
  3. NITRODERM [Concomitant]
     Dosage: 1 DF, UNK
     Route: 062
     Dates: start: 20061204, end: 20080212
  4. LASIX [Concomitant]
     Dosage: 20 MG, UNK
     Route: 048
     Dates: start: 20061204, end: 20080212
  5. ASPIRIN [Concomitant]
     Dosage: 1 DF, UNK
     Route: 048
     Dates: start: 20061204, end: 20080212
  6. KALIMATE [Concomitant]
     Dosage: 20 MG, UNK
     Route: 048
     Dates: start: 20061204, end: 20080212
  7. ALOSITOL [Concomitant]
     Dosage: 1 DF, UNK
     Route: 048
     Dates: start: 20061204, end: 20080212

REACTIONS (3)
  - CARDIAC FAILURE [None]
  - HAEMODIALYSIS [None]
  - RENAL FAILURE [None]
